FAERS Safety Report 4505636-5 (Version None)
Quarter: 2004Q4

REPORT INFORMATION
  Report Type: 
  Country: None (occurrence: None)
  Receive Date: 20041018
  Receipt Date: 20040710
  Transmission Date: 20050328
  Serious: No
  Sender: FDA-Public Use
  Company Number: 207772

PATIENT
  Sex: Male

DRUGS (1)
  1. XOLAIR [Suspect]
     Dosage: SUBCUTANEOUS
     Route: 058

REACTIONS (1)
  - MYALGIA [None]
